FAERS Safety Report 4319262-4 (Version None)
Quarter: 2004Q1

REPORT INFORMATION
  Report Type: 
  Country: None (occurrence: None)
  Receive Date: 20040318
  Receipt Date: 20040318
  Transmission Date: 20041129
  Serious: Yes (Other)
  Sender: FDA-Public Use
  Company Number: None

PATIENT
  Sex: Male
  Weight: 77.1115 kg

DRUGS (1)
  1. ZOLOFT [Suspect]
     Indication: DEPRESSION
     Dosage: 100MG DAILY ORAL
     Route: 048
     Dates: start: 20030710, end: 20040201

REACTIONS (4)
  - AGGRESSION [None]
  - EJACULATION DISORDER [None]
  - ERECTILE DYSFUNCTION [None]
  - HOSTILITY [None]
